FAERS Safety Report 24005178 (Version 1)
Quarter: 2024Q2

REPORT INFORMATION
  Report Type: Spontaneous
  Country: US (occurrence: None)
  Receive Date: 20240621
  Receipt Date: 20240621
  Transmission Date: 20240716
  Serious: Yes (Other)
  Sender: FDA-Public Use
  Company Number: None

PATIENT
  Age: 73 Year
  Sex: Female
  Weight: 63.45 kg

DRUGS (1)
  1. CHLORHEXIDINE GLUCONATE [Suspect]
     Active Substance: CHLORHEXIDINE GLUCONATE
     Indication: Fungal infection
     Dosage: OTHER QUANTITY : 1 13 ML OR 1/2 FL OZ?FREQUENCY : TWICE A DAY?OTHER ROUTE : SWISH THEN SPIT OUT?
     Route: 050
     Dates: start: 20240401, end: 20240508

REACTIONS (5)
  - Rash [None]
  - Stomatitis [None]
  - Impaired healing [None]
  - Abscess limb [None]
  - Stomatitis [None]

NARRATIVE: CASE EVENT DATE: 20240401
